FAERS Safety Report 5889074-9 (Version None)
Quarter: 2008Q3

REPORT INFORMATION
  Report Type: 
  Country: None (occurrence: None)
  Receive Date: 20080919
  Receipt Date: 20080513
  Transmission Date: 20090109
  Serious: No
  Sender: FDA-Public Use
  Company Number: US-KINGPHARMUSA00001-K200800537

PATIENT

DRUGS (1)
  1. SONATA [Suspect]

REACTIONS (1)
  - DRUG INEFFECTIVE [None]
